FAERS Safety Report 17501540 (Version 1)
Quarter: 2020Q1

REPORT INFORMATION
  Report Type: Spontaneous
  Country: US (occurrence: US)
  Receive Date: 20200304
  Receipt Date: 20200304
  Transmission Date: 20200409
  Serious: No
  Sender: FDA-Public Use
  Company Number: None

PATIENT
  Age: 48 Year
  Sex: Male
  Weight: 90.9 kg

DRUGS (3)
  1. DICLOFENAC 75MG EC TABLETS [Concomitant]
     Dates: start: 20190625
  2. EMGALITY [Suspect]
     Active Substance: GALCANEZUMAB-GNLM
     Indication: MIGRAINE
     Dosage: ?          OTHER FREQUENCY:FOR 4 WEEKS;?
     Route: 058
     Dates: start: 20200205, end: 20200304
  3. HYDROXYZINE PAMOATE 25MG CAPSULES [Concomitant]

REACTIONS (4)
  - Anxiety [None]
  - Dizziness [None]
  - Muscle twitching [None]
  - Arthralgia [None]

NARRATIVE: CASE EVENT DATE: 20200208
